FAERS Safety Report 9563135 (Version 2)
Quarter: 2013Q3

REPORT INFORMATION
  Report Type: Spontaneous
  Country: US (occurrence: US)
  Receive Date: 20130927
  Receipt Date: 20130927
  Transmission Date: 20140515
  Serious: No
  Sender: FDA-Public Use
  Company Number: US-BRISTOL-MYERS SQUIBB COMPANY-17328436

PATIENT
  Age: 83 Year
  Sex: Female
  Weight: 57.14 kg

DRUGS (11)
  1. ONGLYZA TABS 2.5 MG [Suspect]
     Indication: TYPE 2 DIABETES MELLITUS
     Route: 048
     Dates: start: 20120511, end: 20121022
  2. METFORMIN [Concomitant]
  3. GLYBURIDE [Concomitant]
  4. ALTACE [Concomitant]
  5. BABY ASPIRIN [Concomitant]
  6. HYDROCHLOROTHIAZIDE [Concomitant]
  7. WARFARIN [Concomitant]
  8. DIGOXIN [Concomitant]
  9. IRON TABLETS [Concomitant]
  10. GERITOL [Concomitant]
  11. VITAMIN D3 [Concomitant]

REACTIONS (6)
  - Local swelling [Unknown]
  - Dysphagia [Unknown]
  - Decreased appetite [Unknown]
  - Headache [Unknown]
  - Abdominal distension [Unknown]
  - Malaise [Unknown]
